FAERS Safety Report 13836525 (Version 1)
Quarter: 2017Q3

REPORT INFORMATION
  Report Type: Spontaneous
  Country: TN (occurrence: TN)
  Receive Date: 20170804
  Receipt Date: 20170804
  Transmission Date: 20171127
  Serious: Yes (Hospitalization)
  Sender: FDA-Public Use
  Company Number: TN-IMPAX LABORATORIES, INC-2017-IPXL-02292

PATIENT
  Age: 3 Month
  Weight: 6 kg

DRUGS (2)
  1. PROPRANOLOL HYDROCHLORIDE IR [Suspect]
     Active Substance: PROPRANOLOL HYDROCHLORIDE
     Indication: PRODUCT USE IN UNAPPROVED INDICATION
  2. PROPRANOLOL HYDROCHLORIDE IR [Suspect]
     Active Substance: PROPRANOLOL HYDROCHLORIDE
     Indication: HAEMANGIOMA
     Dosage: 2 MG/KG, DAILY
     Route: 048

REACTIONS (8)
  - Cardio-respiratory arrest [Recovered/Resolved]
  - Cyanosis [Recovered/Resolved]
  - Product use in unapproved indication [Unknown]
  - Product use issue [Unknown]
  - Drug administered to patient of inappropriate age [Unknown]
  - Bronchiolitis [Recovered/Resolved]
  - Bradycardia [Recovered/Resolved]
  - Poor feeding infant [Recovered/Resolved]
